FAERS Safety Report 19025251 (Version 1)
Quarter: 2021Q1

REPORT INFORMATION
  Report Type: Spontaneous
  Country: CA (occurrence: CA)
  Receive Date: 20210318
  Receipt Date: 20210318
  Transmission Date: 20210420
  Serious: Yes (Life-Threatening, Hospitalization, Other)
  Sender: FDA-Public Use
  Company Number: CA-SUN PHARMACEUTICAL INDUSTRIES LTD-2021R1-285201

PATIENT
  Age: 18 Year
  Sex: Female

DRUGS (3)
  1. DIAZEPAM. [Suspect]
     Active Substance: DIAZEPAM
     Indication: PRODUCT USED FOR UNKNOWN INDICATION
     Dosage: 50 MILLIGRAMUNK
     Route: 065
  2. FLUOXETINE [Suspect]
     Active Substance: FLUOXETINE HYDROCHLORIDE
     Indication: PRODUCT USED FOR UNKNOWN INDICATION
     Dosage: 300 MILLIGRAM UNK
     Route: 065
  3. VENLAFAXINE [Suspect]
     Active Substance: VENLAFAXINE HYDROCHLORIDE
     Indication: PRODUCT USED FOR UNKNOWN INDICATION
     Dosage: 18000 MILLIGRAM UNK
     Route: 065

REACTIONS (8)
  - Hypotension [Recovered/Resolved]
  - Liver injury [Recovered/Resolved]
  - Somnolence [Unknown]
  - Tachycardia [Recovered/Resolved]
  - Pulseless electrical activity [Recovered/Resolved]
  - Seizure [Recovered/Resolved]
  - Hypoglycaemia [Recovered/Resolved]
  - Overdose [Unknown]
